FAERS Safety Report 8517605-9 (Version None)
Quarter: 2012Q3

REPORT INFORMATION
  Report Type: 
  Country: None (occurrence: None)
  Receive Date: 20120718
  Receipt Date: 20120702
  Transmission Date: 20120928
  Serious: No
  Sender: FDA-Public Use
  Company Number: US-ASTRAZENECA-2010SE23944

PATIENT
  Age: 74 Year
  Sex: Male
  Weight: 87.1 kg

DRUGS (3)
  1. NEXIUM [Suspect]
     Indication: GASTROOESOPHAGEAL REFLUX DISEASE
     Route: 048
     Dates: end: 20110601
  2. METFORMIN HYDROCHLORIDE [Concomitant]
  3. NEXIUM [Suspect]
     Route: 048

REACTIONS (10)
  - HYPOMAGNESAEMIA [None]
  - DIABETES MELLITUS [None]
  - ANAEMIA [None]
  - ARTHRALGIA [None]
  - INTENTIONAL DRUG MISUSE [None]
  - BLOOD IRON DECREASED [None]
  - OFF LABEL USE [None]
  - GASTROOESOPHAGEAL REFLUX DISEASE [None]
  - BLOOD CHOLESTEROL INCREASED [None]
  - DRUG INEFFECTIVE [None]
